FAERS Safety Report 17529306 (Version 1)
Quarter: 2020Q1

REPORT INFORMATION
  Report Type: Spontaneous
  Country: CA (occurrence: CA)
  Receive Date: 20200312
  Receipt Date: 20200312
  Transmission Date: 20200409
  Serious: Yes (Other)
  Sender: FDA-Public Use
  Company Number: CA-TEVA-2020-CA-1199791

PATIENT
  Age: 64 Year
  Sex: Male

DRUGS (2)
  1. REMICADE [Concomitant]
     Active Substance: INFLIXIMAB
  2. METHOTREXATE. [Suspect]
     Active Substance: METHOTREXATE
     Indication: COLITIS ULCERATIVE
     Route: 065

REACTIONS (5)
  - Bowel movement irregularity [Unknown]
  - Weight decreased [Unknown]
  - Haematochezia [Unknown]
  - Mucous stools [Unknown]
  - Drug ineffective for unapproved indication [Unknown]
